FAERS Safety Report 26127905 (Version 1)
Quarter: 2025Q4

REPORT INFORMATION
  Report Type: Spontaneous
  Country: US (occurrence: US)
  Receive Date: 20251206
  Receipt Date: 20251206
  Transmission Date: 20260117
  Serious: No
  Sender: ELI LILLY AND COMPANY
  Company Number: US-ELI_LILLY_AND_COMPANY-US202512002568

PATIENT
  Age: 80 Year
  Sex: Female

DRUGS (2)
  1. FORTEO [Suspect]
     Active Substance: TERIPARATIDE
     Indication: Product used for unknown indication
     Dosage: UNK, BID
     Route: 065
     Dates: start: 202407
  2. FORTEO [Suspect]
     Active Substance: TERIPARATIDE
     Dosage: UNK, BID
     Route: 065
     Dates: start: 20251112

REACTIONS (2)
  - Overdose [Unknown]
  - Device use issue [Unknown]
